FAERS Safety Report 7455800-0 (Version None)
Quarter: 2011Q2

REPORT INFORMATION
  Report Type: 
  Country: None (occurrence: None)
  Receive Date: 20110503
  Receipt Date: 20110420
  Transmission Date: 20111010
  Serious: Yes (Other)
  Sender: FDA-Public Use
  Company Number: PHHY2011BR33356

PATIENT
  Sex: Female

DRUGS (3)
  1. FORASEQ [Suspect]
     Dosage: 2 CAPSULES (TREATMENT 1 + 2) AT NIGHT
     Dates: start: 20100809
  2. FORASEQ [Suspect]
     Dosage: UNK
     Dates: start: 20100901
  3. FORASEQ [Suspect]
     Dosage: UNK
     Dates: start: 20101001

REACTIONS (4)
  - UPPER RESPIRATORY TRACT INFLAMMATION [None]
  - BACK PAIN [None]
  - DYSPNOEA [None]
  - FATIGUE [None]
